FAERS Safety Report 25572049 (Version 1)
Quarter: 2025Q3

REPORT INFORMATION
  Report Type: Spontaneous
  Country: GB (occurrence: GB)
  Receive Date: 20250717
  Receipt Date: 20250717
  Transmission Date: 20251021
  Serious: Yes (Other)
  Sender: PFIZER
  Company Number: GB-PFIZER INC-202500144130

PATIENT
  Age: 50 Year
  Sex: Male

DRUGS (1)
  1. CIBINQO [Suspect]
     Active Substance: ABROCITINIB
     Dates: start: 20250305, end: 2025

REACTIONS (2)
  - Renal impairment [Unknown]
  - Pneumonia [Unknown]

NARRATIVE: CASE EVENT DATE: 20250531
